FAERS Safety Report 5501659-8 (Version None)
Quarter: 2007Q4

REPORT INFORMATION
  Report Type: 
  Country: None (occurrence: None)
  Receive Date: 20071022
  Receipt Date: 20070723
  Transmission Date: 20080405
  Serious: No
  Sender: FDA-Public Use
  Company Number: SPV1-2007-03666

PATIENT
  Age: 7 Year
  Sex: Female
  Weight: 20.4 kg

DRUGS (2)
  1. VYVANSE [Suspect]
     Indication: ATTENTION DEFICIT/HYPERACTIVITY DISORDER
     Dosage: 30 MG, 1X/DAY; QD;
     Dates: start: 20070722
  2. ADDERALL XR 10 [Concomitant]

REACTIONS (3)
  - GASTROENTERITIS VIRAL [None]
  - HEADACHE [None]
  - MOOD ALTERED [None]
